FAERS Safety Report 8183543-7 (Version None)
Quarter: 2012Q1

REPORT INFORMATION
  Report Type: 
  Country: None (occurrence: None)
  Receive Date: 20120130
  Receipt Date: 20111014
  Transmission Date: 20120608
  Serious: Yes (Other)
  Sender: FDA-Public Use
  Company Number: 043520

PATIENT
  Age: 24 Year
  Sex: Female

DRUGS (4)
  1. TOPAMAX [Suspect]
     Indication: EPILEPSY
     Dosage: (175 MG, 75 MG IN AM+100MG AT BEDTIME ORAL)
     Route: 048
     Dates: start: 20110901
  2. SUBOXONE [Suspect]
     Indication: DRUG DEPENDENCE
     Dosage: (12 MG, DAILY DOSE: 12MG; CUTS AN 8MG STRIP TO ACHIEVE DOSE SUBLINGUAL)
     Route: 060
     Dates: start: 20110701
  3. KEPPRA [Suspect]
     Indication: EPILEPSY
     Dosage: (1000 MG, DAILY DOSE: 100MG ORAL)
     Route: 048
     Dates: start: 20110901
  4. PHENOBARBITAL TAB [Concomitant]

REACTIONS (1)
  - CONDITION AGGRAVATED [None]
